FAERS Safety Report 5874632-8 (Version None)
Quarter: 2008Q3

REPORT INFORMATION
  Report Type: 
  Country: None (occurrence: None)
  Receive Date: 20080829
  Receipt Date: 20070614
  Transmission Date: 20090109
  Serious: Yes (Other)
  Sender: FDA-Public Use
  Company Number: 2008S1011622

PATIENT
  Age: 73 Year
  Sex: Male

DRUGS (17)
  1. CLARITHROMYCIN [Suspect]
     Indication: LOWER RESPIRATORY TRACT INFECTION
     Dosage: 500 MG; ORAL
     Route: 048
     Dates: start: 20070527, end: 20070605
  2. CO-AMOXICLAV (AMOXICILLIN W/CLAVULANATE POTASSIUM) [Concomitant]
  3. FUROSEMIDE [Concomitant]
  4. GLICLAZIDE (GLICLAZIDE) [Concomitant]
  5. NYSTATIN [Concomitant]
  6. OMEPRAZOLE [Concomitant]
  7. PREDNISONE [Concomitant]
  8. ROSIGLITAZONE [Concomitant]
  9. SENNA (SENNA ALEXANDRINA) [Concomitant]
  10. SERETIDE (SERETIDE) [Concomitant]
  11. SIMVASTATIN [Concomitant]
  12. TAMSULOSIN HCL [Concomitant]
  13. TOLTERODINE TARTRATE [Concomitant]
  14. VERAPAMIL [Concomitant]
  15. WARFARIN SODIUM [Concomitant]
  16. ZOLPIDEM TARTRATE [Concomitant]
  17. COMBIVENT [Concomitant]

REACTIONS (1)
  - MANIA [None]
